FAERS Safety Report 5599632-7 (Version None)
Quarter: 2008Q1

REPORT INFORMATION
  Report Type: 
  Country: None (occurrence: None)
  Receive Date: 20080123
  Receipt Date: 20080118
  Transmission Date: 20080703
  Serious: Yes (Other)
  Sender: FDA-Public Use
  Company Number: US-BAYER-200810292BCC

PATIENT
  Age: 64 Year
  Sex: Male
  Weight: 82 kg

DRUGS (5)
  1. ALEVE [Suspect]
     Indication: HAEMORRHOIDS
     Dosage: UNIT DOSE: 220 MG
     Route: 048
     Dates: start: 20080101, end: 20080101
  2. LIPITOR [Concomitant]
  3. PLAVIX [Concomitant]
  4. ALTACE [Concomitant]
  5. ATENOLOL [Concomitant]

REACTIONS (1)
  - RENAL PAIN [None]
